FAERS Safety Report 9595324 (Version 2)
Quarter: 2013Q4

REPORT INFORMATION
  Report Type: Spontaneous
  Country: US (occurrence: US)
  Receive Date: 20131004
  Receipt Date: 20131004
  Transmission Date: 20140711
  Serious: No
  Sender: FDA-Public Use
  Company Number: US-PURDUE-USA-2012-0091430

PATIENT
  Sex: Male
  Weight: 116.55 kg

DRUGS (5)
  1. BUTRANS [Suspect]
     Indication: PRODUCT USED FOR UNKNOWN INDICATION
     Dosage: 5 MCG, UNK
     Route: 062
     Dates: start: 20111208
  2. BUTRANS [Suspect]
     Dosage: 20 MCG, 1/WEEK
     Route: 062
  3. BUTRANS [Suspect]
     Dosage: 10 MCG, UNK
     Route: 062
     Dates: start: 20120522
  4. BUTRANS [Suspect]
     Dosage: 5 MCG, UNK
     Route: 062
     Dates: end: 20120605
  5. OXYCODONE HYDROCHLORIDE (SIMILAR TO NDA 22-272) [Suspect]
     Indication: BACK PAIN
     Dosage: 5 MG, (4 TO 6 TABLETS DAILY)
     Route: 048

REACTIONS (5)
  - Cold sweat [Unknown]
  - Dyspnoea [Unknown]
  - Hyperhidrosis [Recovered/Resolved]
  - Pallor [Recovered/Resolved]
  - Palpitations [Recovered/Resolved]
